FAERS Safety Report 10155018 (Version 2)
Quarter: 2014Q2

REPORT INFORMATION
  Report Type: Spontaneous
  Country: GB (occurrence: GB)
  Receive Date: 20140506
  Receipt Date: 20140604
  Transmission Date: 20141212
  Serious: Yes (Death, Other)
  Sender: FDA-Public Use
  Company Number: PHFR2014GB003156

PATIENT
  Age: 44 Year
  Sex: Female
  Weight: 60 kg

DRUGS (4)
  1. AFINITOR [Suspect]
     Indication: BREAST CANCER METASTATIC
     Dosage: 10 MG, DAILY
     Route: 048
     Dates: start: 20140120, end: 20140427
  2. EXEMESTANE [Concomitant]
     Indication: BREAST CANCER METASTATIC
     Dosage: 25 MG, DAILY
     Route: 048
     Dates: start: 20140106
  3. SIMVASTATIN [Concomitant]
     Indication: BLOOD CHOLESTEROL INCREASED
     Dosage: UNK
     Route: 048
     Dates: start: 20140227
  4. CO-AMOXICLAV [Concomitant]
     Indication: LOWER RESPIRATORY TRACT INFECTION
     Dosage: UNK
     Route: 048
     Dates: start: 20140418, end: 20140425

REACTIONS (12)
  - Renal failure acute [Fatal]
  - Intestinal mass [Unknown]
  - Haemoptysis [Unknown]
  - Mucosal inflammation [Unknown]
  - Pneumonitis [Unknown]
  - Renal failure [Unknown]
  - Haemoglobin decreased [Unknown]
  - Lung infection [Unknown]
  - Dehydration [Unknown]
  - Lower respiratory tract infection [Unknown]
  - Productive cough [Unknown]
  - Gastrointestinal haemorrhage [Unknown]
